FAERS Safety Report 12179846 (Version 2)
Quarter: 2016Q2

REPORT INFORMATION
  Report Type: Report from Study
  Country: US (occurrence: US)
  Receive Date: 20160315
  Receipt Date: 20160502
  Transmission Date: 20160815
  Serious: Yes (Death, Other)
  Sender: FDA-Public Use
  Company Number: US-GILEAD-2016-0203098

PATIENT
  Age: 55 Year
  Weight: 69.39 kg

DRUGS (5)
  1. DIGOXIN. [Concomitant]
     Active Substance: DIGOXIN
  2. REVATIO [Concomitant]
     Active Substance: SILDENAFIL CITRATE
  3. AMBRISENTAN [Suspect]
     Active Substance: AMBRISENTAN
     Indication: PRODUCT USED FOR UNKNOWN INDICATION
     Dosage: 10 MG, UNK
     Route: 048
     Dates: start: 20110810
  4. LASIX [Concomitant]
     Active Substance: FUROSEMIDE
  5. METOPROLOL TARTRATE. [Concomitant]
     Active Substance: METOPROLOL TARTRATE

REACTIONS (6)
  - Cor pulmonale chronic [Unknown]
  - Hypertension [Unknown]
  - Death [Fatal]
  - Pulmonary arterial hypertension [Unknown]
  - Cardiac failure congestive [Unknown]
  - Oedema peripheral [Unknown]
